FAERS Safety Report 9674713 (Version 2)
Quarter: 2014Q1

REPORT INFORMATION
  Report Type: Report from Study
  Country: CA (occurrence: CA)
  Receive Date: 20131107
  Receipt Date: 20140103
  Transmission Date: 20141002
  Serious: Yes (Life-Threatening)
  Sender: FDA-Public Use
  Company Number: CA-JNJFOC-20131019405

PATIENT
  Age: 54 Year
  Sex: Female
  Weight: 74.1 kg

DRUGS (8)
  1. REMICADE [Suspect]
     Indication: CROHN^S DISEASE
     Route: 042
     Dates: start: 20130123
  2. HCTZ [Concomitant]
     Indication: HYPERTENSION
     Route: 065
  3. VENTOLIN [Concomitant]
     Route: 065
  4. RAMIPRIL [Concomitant]
     Indication: HYPERTENSION
     Route: 065
  5. OMNARIS [Concomitant]
     Route: 065
  6. CHOLESTYRAMINE [Concomitant]
     Route: 065
  7. ACLASTA [Concomitant]
     Indication: OSTEOPOROSIS
     Route: 065
  8. ADVAIR [Concomitant]
     Route: 065

REACTIONS (4)
  - Cardiac valve disease [Not Recovered/Not Resolved]
  - Syncope [Recovered/Resolved]
  - Hypertension [Recovered/Resolved]
  - Confusional state [Recovered/Resolved]
